FAERS Safety Report 9457812 (Version 1)
Quarter: 2013Q3

REPORT INFORMATION
  Report Type: Report from Study
  Country: US (occurrence: US)
  Receive Date: 20130814
  Receipt Date: 20130814
  Transmission Date: 20140515
  Serious: Yes (Other)
  Sender: FDA-Public Use
  Company Number: PHEH2013US016968

PATIENT
  Age: 59 Year
  Sex: Female

DRUGS (1)
  1. GILENYA [Suspect]
     Indication: MULTIPLE SCLEROSIS
     Dosage: 0.5 MG, QD
     Route: 048
     Dates: start: 20110907, end: 201307

REACTIONS (4)
  - Chest wall cyst [Recovering/Resolving]
  - Skin infection [Recovering/Resolving]
  - Infected cyst [Recovering/Resolving]
  - White blood cell count decreased [Recovering/Resolving]
